FAERS Safety Report 5214791-3 (Version None)
Quarter: 2007Q1

REPORT INFORMATION
  Report Type: 
  Country: None (occurrence: None)
  Receive Date: 20070122
  Receipt Date: 20070122
  Transmission Date: 20070707
  Serious: Yes (Life-Threatening, Hospitalization)
  Sender: FDA-Public Use
  Company Number: None

PATIENT
  Age: 47 Year
  Sex: Male
  Weight: 85.2762 kg

DRUGS (3)
  1. CYMBALTA [Suspect]
     Indication: ANXIETY
     Dosage: 60 MG ONCE DAILY
     Route: 048
     Dates: start: 20061019, end: 20061207
  2. CYMBALTA [Suspect]
     Indication: DEPRESSION
     Dosage: 60 MG ONCE DAILY
     Route: 048
     Dates: start: 20061019, end: 20061207
  3. STRATTERA [Suspect]
     Dosage: 40 MG TWICE DAILY PO
     Route: 048
     Dates: start: 20061010, end: 20061207

REACTIONS (1)
  - SUICIDE ATTEMPT [None]
